FAERS Safety Report 15945166 (Version 4)
Quarter: 2019Q2

REPORT INFORMATION
  Report Type: Report from Study
  Country: None (occurrence: CA)
  Receive Date: 20190211
  Receipt Date: 20190502
  Transmission Date: 20190711
  Serious: Yes (Hospitalization, Other)
  Sender: FDA-Public Use
  Company Number: CA-ABBVIE-19K-028-2659339-00

PATIENT
  Sex: Male

DRUGS (2)
  1. HUMIRA [Suspect]
     Active Substance: ADALIMUMAB
     Indication: HIDRADENITIS
     Route: 058
     Dates: start: 20160104, end: 20190215
  2. HUMIRA [Suspect]
     Active Substance: ADALIMUMAB
     Route: 058
     Dates: start: 2019

REACTIONS (10)
  - Surgery [Unknown]
  - Wound dehiscence [Not Recovered/Not Resolved]
  - Suture related complication [Not Recovered/Not Resolved]
  - Gait disturbance [Unknown]
  - Pain [Not Recovered/Not Resolved]
  - Cyst [Unknown]
  - Adhesion [Unknown]
  - Mobility decreased [Not Recovered/Not Resolved]
  - Skin graft failure [Not Recovered/Not Resolved]
  - Hidradenitis [Unknown]

NARRATIVE: CASE EVENT DATE: 2019
